FAERS Safety Report 9079666 (Version 1)
Quarter: 2013Q1

REPORT INFORMATION
  Report Type: Report from Study
  Country: US (occurrence: US)
  Receive Date: 20130130
  Receipt Date: 20130130
  Transmission Date: 20140127
  Serious: No
  Sender: FDA-Public Use
  Company Number: US-ABBOTT-12P-163-0962898-00

PATIENT
  Sex: Male

DRUGS (3)
  1. HUMIRA 40 MG/0.8 ML PEN [Suspect]
     Indication: RHEUMATOID ARTHRITIS
     Dates: start: 20100301
  2. UNKNOWN PAIN PILL [Concomitant]
     Indication: BACK PAIN
  3. PREDAXA [Concomitant]
     Indication: PRODUCT USED FOR UNKNOWN INDICATION

REACTIONS (6)
  - Influenza like illness [Unknown]
  - Chills [Unknown]
  - Chills [Unknown]
  - Nausea [Unknown]
  - Hyperhidrosis [Unknown]
  - Back pain [Unknown]
